FAERS Safety Report 16275809 (Version 2)
Quarter: 2019Q2

REPORT INFORMATION
  Report Type: Spontaneous
  Country: US (occurrence: US)
  Receive Date: 20190506
  Receipt Date: 20190628
  Transmission Date: 20190711
  Serious: Yes (Other)
  Sender: FDA-Public Use
  Company Number: US-SA-2019SA115960

PATIENT
  Age: 45 Year
  Sex: Female
  Weight: 86.17 kg

DRUGS (4)
  1. NEOSAR [Concomitant]
     Active Substance: CYCLOPHOSPHAMIDE
  2. TAXOTERE [Suspect]
     Active Substance: DOCETAXEL
     Dosage: 150 MG, Q3W
     Route: 042
     Dates: start: 20060804, end: 20060804
  3. ADRIAMYCIN [Concomitant]
     Active Substance: DOXORUBICIN HYDROCHLORIDE
  4. TAXOTERE [Suspect]
     Active Substance: DOCETAXEL
     Indication: BREAST CANCER
     Dosage: 150 MG, Q3W
     Route: 042
     Dates: start: 20060602, end: 20060602

REACTIONS (1)
  - Alopecia [Recovering/Resolving]

NARRATIVE: CASE EVENT DATE: 20060616
